FAERS Safety Report 4756763-9 (Version None)
Quarter: 2005Q3

REPORT INFORMATION
  Report Type: 
  Country: None (occurrence: None)
  Receive Date: 20050830
  Receipt Date: 20050128
  Transmission Date: 20060218
  Serious: Yes (Other)
  Sender: FDA-Public Use
  Company Number: PHNR2005AU00493

PATIENT
  Age: 83 Year
  Sex: Male

DRUGS (2)
  1. CALCIUM CARBONATE W/VITAMIN D NOS [Concomitant]
  2. ZOMETA [Suspect]
     Indication: METASTASES TO BONE
     Dosage: 4 MG, QMO
     Dates: start: 20000524, end: 20050101

REACTIONS (8)
  - BONE DISORDER [None]
  - GINGIVAL ULCERATION [None]
  - IMPAIRED HEALING [None]
  - JAW OPERATION [None]
  - OSTEONECROSIS [None]
  - PAIN IN JAW [None]
  - SOFT TISSUE INFECTION [None]
  - TOOTH EXTRACTION [None]
